FAERS Safety Report 7371017-2 (Version None)
Quarter: 2011Q1

REPORT INFORMATION
  Report Type: 
  Country: None (occurrence: None)
  Receive Date: 20110321
  Receipt Date: 20110321
  Transmission Date: 20110831
  Serious: Yes (Life-Threatening)
  Sender: FDA-Public Use
  Company Number: None

PATIENT
  Sex: Female
  Weight: 70.3075 kg

DRUGS (1)
  1. MELOXICAM [Suspect]

REACTIONS (4)
  - NIGHTMARE [None]
  - DYSPNOEA [None]
  - DIZZINESS [None]
  - ANGIOEDEMA [None]
